FAERS Safety Report 19869999 (Version 2)
Quarter: 2021Q4

REPORT INFORMATION
  Report Type: Spontaneous
  Country: IL (occurrence: IL)
  Receive Date: 20210923
  Receipt Date: 20211022
  Transmission Date: 20220303
  Serious: Yes (Other)
  Sender: FDA-Public Use
  Company Number: IL-NOVOPROD-846532

PATIENT
  Sex: Female

DRUGS (1)
  1. SAXENDA [Suspect]
     Active Substance: LIRAGLUTIDE
     Indication: Product used for unknown indication
     Dosage: 3.00
     Route: 058

REACTIONS (3)
  - Intraocular pressure test abnormal [Not Recovered/Not Resolved]
  - Eye injury [Unknown]
  - Vaginal haemorrhage [Not Recovered/Not Resolved]
